FAERS Safety Report 8830363 (Version 2)
Quarter: 2012Q4

REPORT INFORMATION
  Report Type: 
  Country: US (occurrence: US)
  Receive Date: 20121009
  Receipt Date: 20121025
  Transmission Date: 20130627
  Serious: No
  Sender: FDA-Public Use
  Company Number: US-PFIZER INC-2012246020

PATIENT
  Sex: Male

DRUGS (1)
  1. EPLERENONE [Suspect]
     Indication: HYPERTENSION
     Dosage: 4 DF, daily

REACTIONS (1)
  - Drug ineffective [Unknown]
